FAERS Safety Report 13685172 (Version 1)
Quarter: 2017Q2

REPORT INFORMATION
  Report Type: Spontaneous
  Country: US (occurrence: US)
  Receive Date: 20170623
  Receipt Date: 20170623
  Transmission Date: 20170830
  Serious: No
  Sender: FDA-Public Use
  Company Number: US-BAUSCH-BL-2017-002747

PATIENT
  Age: 60 Year
  Sex: Female
  Weight: 44.04 kg

DRUGS (5)
  1. VAGIFEM [Concomitant]
     Active Substance: ESTRADIOL
     Indication: HORMONE THERAPY
  2. SOLODYN [Suspect]
     Active Substance: MINOCYCLINE HYDROCHLORIDE
     Indication: ROSACEA
     Route: 048
     Dates: start: 201701
  3. SPIRONOLACTONE. [Concomitant]
     Active Substance: SPIRONOLACTONE
     Indication: PRODUCT USED FOR UNKNOWN INDICATION
     Route: 048
  4. SOLODYN [Suspect]
     Active Substance: MINOCYCLINE HYDROCHLORIDE
     Route: 048
     Dates: start: 2017
  5. MINIVELLE [Concomitant]
     Active Substance: ESTRADIOL
     Indication: HORMONE THERAPY

REACTIONS (1)
  - Off label use [Unknown]

NARRATIVE: CASE EVENT DATE: 201701
